FAERS Safety Report 16217464 (Version 3)
Quarter: 2019Q3

REPORT INFORMATION
  Report Type: Spontaneous
  Country: KR (occurrence: KR)
  Receive Date: 20190419
  Receipt Date: 20190906
  Transmission Date: 20191004
  Serious: Yes (Other)
  Sender: FDA-Public Use
  Company Number: KR-AMGEN-KORSP2019060670

PATIENT
  Age: 28 Year
  Sex: Female

DRUGS (3)
  1. BUSULFAN. [Concomitant]
     Active Substance: BUSULFAN
  2. FLUDARABINE [Concomitant]
     Active Substance: FLUDARABINE PHOSPHATE
  3. BLINCYTO [Suspect]
     Active Substance: BLINATUMOMAB
     Indication: B PRECURSOR TYPE ACUTE LEUKAEMIA
     Dosage: UNK
     Route: 065
     Dates: start: 20170701

REACTIONS (1)
  - Precursor B-lymphoblastic lymphoma recurrent [Unknown]
